FAERS Safety Report 10266822 (Version 1)
Quarter: 2014Q2

REPORT INFORMATION
  Report Type: Spontaneous
  Country: US (occurrence: None)
  Receive Date: 20140625
  Receipt Date: 20140625
  Transmission Date: 20141212
  Serious: No
  Sender: FDA-Public Use
  Company Number: None

PATIENT
  Age: 57 Year
  Sex: Female
  Weight: 63.5 kg

DRUGS (1)
  1. COUGH DM [Suspect]
     Indication: COUGH
     Dosage: 10 ML EVERY 12 HOURS TAKEN BY MOUTH
     Route: 048
     Dates: start: 20140607, end: 20140607

REACTIONS (4)
  - Feeling abnormal [None]
  - Impaired work ability [None]
  - Product substitution issue [None]
  - Therapeutic response changed [None]
